FAERS Safety Report 5714336-5 (Version None)
Quarter: 2008Q2

REPORT INFORMATION
  Report Type: 
  Country: None (occurrence: None)
  Receive Date: 20080412
  Receipt Date: 20080412
  Transmission Date: 20081010
  Serious: Yes (Hospitalization)
  Sender: FDA-Public Use
  Company Number: None

PATIENT
  Age: 31 Year
  Sex: Male

DRUGS (1)
  1. CELLCEPT [Suspect]

REACTIONS (13)
  - ANOREXIA [None]
  - COMPLICATIONS OF TRANSPLANTED KIDNEY [None]
  - CYTOMEGALOVIRUS COLITIS [None]
  - FAILURE TO THRIVE [None]
  - IMMUNOSUPPRESSION [None]
  - MALAISE [None]
  - NAUSEA [None]
  - OPPORTUNISTIC INFECTION [None]
  - PERICARDIAL EFFUSION [None]
  - REFUSAL OF TREATMENT BY PATIENT [None]
  - RENAL IMPAIRMENT [None]
  - VOMITING [None]
  - WEIGHT DECREASED [None]
